FAERS Safety Report 5573787-2 (Version None)
Quarter: 2007Q4

REPORT INFORMATION
  Report Type: 
  Country: None (occurrence: None)
  Receive Date: 20071226
  Receipt Date: 20071217
  Transmission Date: 20080405
  Serious: Yes (Hospitalization)
  Sender: FDA-Public Use
  Company Number: DE-ASTRAZENECA-2007PK02654

PATIENT
  Age: 33 Year
  Sex: Male

DRUGS (13)
  1. SEROQUEL [Suspect]
     Indication: BIPOLAR DISORDER
     Route: 048
     Dates: start: 20070406, end: 20070407
  2. SEROQUEL [Interacting]
     Route: 048
     Dates: start: 20070408, end: 20070408
  3. SEROQUEL [Interacting]
     Route: 048
     Dates: start: 20070409, end: 20070410
  4. SEROQUEL [Interacting]
     Route: 048
     Dates: start: 20070411, end: 20070423
  5. SEROQUEL [Interacting]
     Route: 048
     Dates: start: 20070424, end: 20070424
  6. SEROQUEL [Interacting]
     Route: 048
     Dates: start: 20070426, end: 20070426
  7. SEROQUEL [Interacting]
     Route: 048
     Dates: start: 20070427, end: 20070503
  8. KLACID [Interacting]
     Indication: PNEUMONIA ASPIRATION
     Route: 048
     Dates: start: 20070423, end: 20070424
  9. NEXIUM [Concomitant]
     Route: 048
  10. ERGENYL [Concomitant]
     Route: 048
     Dates: start: 20070418
  11. METFORMIN HCL [Concomitant]
     Indication: TYPE 1 DIABETES MELLITUS
     Route: 048
  12. GLYBURIDE [Concomitant]
     Indication: TYPE 1 DIABETES MELLITUS
     Route: 048
  13. UNACID [Concomitant]
     Indication: PNEUMONIA ASPIRATION
     Route: 048
     Dates: start: 20070423, end: 20070424

REACTIONS (2)
  - DRUG INTERACTION [None]
  - SEDATION [None]
